FAERS Safety Report 19222318 (Version 1)
Quarter: 2021Q2

REPORT INFORMATION
  Report Type: Spontaneous
  Country: US (occurrence: US)
  Receive Date: 20210506
  Receipt Date: 20210506
  Transmission Date: 20210717
  Serious: No
  Sender: FDA-Public Use
  Company Number: None

PATIENT
  Age: 52 Year
  Sex: Male

DRUGS (2)
  1. ASPIRIN (ASPIRIN 81MG TAB,EC) [Suspect]
     Active Substance: ASPIRIN
     Dates: start: 20200330
  2. MELOXICAM (MELOXICAM 15MG TAB) [Suspect]
     Active Substance: MELOXICAM
     Indication: PAIN
     Dates: start: 20210303, end: 20210420

REACTIONS (3)
  - Gastric ulcer [None]
  - Faeces discoloured [None]
  - Gastric haemorrhage [None]

NARRATIVE: CASE EVENT DATE: 20210417
